FAERS Safety Report 6240321-3 (Version None)
Quarter: 2009Q2

REPORT INFORMATION
  Report Type: 
  Country: None (occurrence: None)
  Receive Date: 20090623
  Receipt Date: 20080711
  Transmission Date: 20091009
  Serious: No
  Sender: FDA-Public Use
  Company Number: US-ASTRAZENECA-2008UW13895

PATIENT
  Age: 67 Year
  Sex: Female
  Weight: 89.4 kg

DRUGS (10)
  1. PULMICORT RESPULES [Suspect]
     Indication: ASTHMA
     Route: 055
  2. PULMICORT RESPULES [Suspect]
     Indication: LUNG INFECTION
     Route: 055
  3. PREDNISONE TAB [Concomitant]
  4. ALBUTEROL [Concomitant]
  5. SINGULAIR [Concomitant]
  6. DETROL [Concomitant]
  7. HYDROCHLOROTHIAZIDE [Concomitant]
  8. DIOVAN [Concomitant]
  9. MULTI-VITAMIN [Concomitant]
  10. HOMEOPATHIC ASTHMA MED [Concomitant]

REACTIONS (1)
  - EYE DISORDER [None]
